FAERS Safety Report 18768719 (Version 2)
Quarter: 2021Q1

REPORT INFORMATION
  Report Type: Report from Study
  Country: GB (occurrence: GB)
  Receive Date: 20210121
  Receipt Date: 20210315
  Transmission Date: 20210419
  Serious: Yes (Other)
  Sender: FDA-Public Use
  Company Number: GB-PURDUE-USA-2021-0199130

PATIENT
  Sex: Male
  Weight: 2.04 kg

DRUGS (2)
  1. MORPHINE SULFATE (SIMILAR TO NDA 19?516) [Suspect]
     Active Substance: MORPHINE SULFATE
     Indication: ANALGESIC THERAPY
     Dosage: 100 MCG/KG, APPROXIMATELY 1H BEFORE THE CLINICAL PROCEDURE
     Route: 048
  2. NON?PMN MORPHINE SULFATE [Suspect]
     Active Substance: MORPHINE SULFATE
     Indication: ANALGESIC THERAPY
     Dosage: 100 MCG/KG (STRENGTH 200MCG/ML), APPROXIMATELY 1H BEFORE THE CLINICAL PROCEDURE
     Route: 048

REACTIONS (3)
  - Hypoxia [Unknown]
  - Apnoea [Unknown]
  - Heart rate decreased [Unknown]
